FAERS Safety Report 5041897-4 (Version None)
Quarter: 2006Q2

REPORT INFORMATION
  Report Type: 
  Country: None (occurrence: None)
  Receive Date: 20060627
  Receipt Date: 20060610
  Transmission Date: 20061013
  Serious: Yes (Other)
  Sender: FDA-Public Use
  Company Number: US200606003339

PATIENT
  Age: 33 Year
  Sex: Female

DRUGS (1)
  1. HUMALOG [Suspect]
     Indication: DIABETES MELLITUS
     Dosage: 30 U
     Dates: start: 20010101, end: 20010101

REACTIONS (2)
  - DIABETIC KETOACIDOSIS [None]
  - PHARMACEUTICAL PRODUCT COMPLAINT [None]
